FAERS Safety Report 10404155 (Version 1)
Quarter: 2014Q1

REPORT INFORMATION
  Report Type: Spontaneous
  Country: US (occurrence: None)
  Receive Date: 20130916
  Receipt Date: 20130916
  Transmission Date: 20141002
  Serious: Yes (Other)
  Sender: FDA-Public Use
  Company Number: JPI-P-025664

PATIENT
  Age: 30 Year
  Sex: Male
  Weight: 69.85 kg

DRUGS (4)
  1. XYREM (500 MILLIGRAM/MILLILITERS, SOLUTION) (SODIUM OXYBATE) [Suspect]
     Indication: NARCOLEPSY
     Dosage: 4.5 GM (2.25 GM, 2 IN 1 D), ORAL
     Route: 048
     Dates: start: 20120313, end: 2012
  2. XYREM (500 MILLIGRAM/MILLILITERS, SOLUTION) (SODIUM OXYBATE) [Suspect]
     Indication: SOMNOLENCE
     Dosage: 4.5 GM (2.25 GM, 2 IN 1 D), ORAL
     Route: 048
     Dates: start: 20120313, end: 2012
  3. HYDROCODONE/APAP [Concomitant]
  4. ALPRAZOLAM [Concomitant]
     Indication: NARCOLEPSY

REACTIONS (8)
  - Anxiety [None]
  - Condition aggravated [None]
  - Panic attack [None]
  - Sleep attacks [None]
  - Fatigue [None]
  - Thinking abnormal [None]
  - Depression [None]
  - Discomfort [None]
